FAERS Safety Report 12916355 (Version 1)
Quarter: 2016Q4

REPORT INFORMATION
  Report Type: Other
  Country: CA (occurrence: CA)
  Receive Date: 20161107
  Receipt Date: 20161107
  Transmission Date: 20170207
  Serious: Yes (Hospitalization)
  Sender: FDA-Public Use
  Company Number: CA-APOTEX-2016AP013934

PATIENT
  Age: 83 Year
  Sex: Male

DRUGS (1)
  1. APO-MIDAZOLAM INJECTABLE 5 MG/ML [Suspect]
     Active Substance: MIDAZOLAM HYDROCHLORIDE
     Indication: SEDATIVE THERAPY
     Dosage: 5 MG, ONCE DAILY
     Route: 042

REACTIONS (2)
  - Unresponsive to stimuli [Unknown]
  - Loss of consciousness [Unknown]
